FAERS Safety Report 11755663 (Version 1)
Quarter: 2015Q4

REPORT INFORMATION
  Report Type: Spontaneous
  Country: US (occurrence: None)
  Receive Date: 20151118
  Receipt Date: 20151118
  Transmission Date: 20160304
  Serious: Yes (Hospitalization)
  Sender: FDA-Public Use
  Company Number: None

PATIENT
  Age: 71 Year
  Sex: Male
  Weight: 104.33 kg

DRUGS (19)
  1. GABAPENTIN. [Suspect]
     Active Substance: GABAPENTIN
     Indication: PROCEDURAL PAIN
     Route: 048
     Dates: start: 20151028, end: 20151101
  2. VITAMIN B12 [Concomitant]
     Active Substance: CYANOCOBALAMIN
  3. AMBIEN [Concomitant]
     Active Substance: ZOLPIDEM TARTRATE
  4. VITAMIN B12 [Concomitant]
     Active Substance: CYANOCOBALAMIN
  5. VIIBRYD [Concomitant]
     Active Substance: VILAZODONE HYDROCHLORIDE
  6. VITAMIN D [Concomitant]
     Active Substance: CHOLECALCIFEROL
  7. MULTIVITAMIN [Concomitant]
     Active Substance: VITAMINS
  8. VITAMIN D [Concomitant]
     Active Substance: CHOLECALCIFEROL
  9. ZITHROMAX [Concomitant]
     Active Substance: AZITHROMYCIN DIHYDRATE
  10. POTASSIUM ER [Concomitant]
  11. AMBIEN [Concomitant]
     Active Substance: ZOLPIDEM TARTRATE
  12. STATIN [Concomitant]
     Active Substance: UNSPECIFIED INGREDIENT
  13. OXYCONTIN [Concomitant]
     Active Substance: OXYCODONE HYDROCHLORIDE
  14. JAYLIN [Concomitant]
  15. MULTIVITAMIN [Concomitant]
     Active Substance: VITAMINS
  16. FOLIC ACID. [Concomitant]
     Active Substance: FOLIC ACID
  17. PERCOCET [Concomitant]
     Active Substance: ACETAMINOPHEN\OXYCODONE HYDROCHLORIDE
  18. BENICAR [Concomitant]
     Active Substance: OLMESARTAN MEDOXOMIL
  19. FISH OIL [Concomitant]
     Active Substance: FISH OIL

REACTIONS (10)
  - Heart rate increased [None]
  - Tremor [None]
  - Psychomotor retardation [None]
  - Memory impairment [None]
  - Hyperhidrosis [None]
  - Confusional state [None]
  - Fall [None]
  - Ataxia [None]
  - Blood pressure increased [None]
  - Encephalopathy [None]

NARRATIVE: CASE EVENT DATE: 20151103
